FAERS Safety Report 18495249 (Version 1)
Quarter: 2020Q4

REPORT INFORMATION
  Report Type: Spontaneous
  Country: US (occurrence: US)
  Receive Date: 20201112
  Receipt Date: 20201112
  Transmission Date: 20210114
  Serious: Yes (Other)
  Sender: FDA-Public Use
  Company Number: US-GW PHARMA-202011USGW03865

PATIENT

DRUGS (1)
  1. EPIDIOLEX [Suspect]
     Active Substance: CANNABIDIOL
     Indication: LENNOX-GASTAUT SYNDROME
     Dosage: 1100 MILLIGRAM, QD (TAKE 3.5 ML IN THE MORNING, 4 ML IN THE EVENING AND 3.5 ML AT NIGHT)
     Route: 048
     Dates: start: 2019

REACTIONS (2)
  - Malaise [Unknown]
  - Seizure [Unknown]
